FAERS Safety Report 8773881 (Version 1)
Quarter: 2012Q4

REPORT INFORMATION
  Report Type: 
  Country: US (occurrence: US)
  Receive Date: 20120907
  Receipt Date: 20120907
  Transmission Date: 20130627
  Serious: No
  Sender: FDA-Public Use
  Company Number: US-ASTRAZENECA-2012SE60479

PATIENT
  Age: 54 Year
  Sex: Female
  Weight: 91.6 kg

DRUGS (6)
  1. METOPROLOL SUCCINATE [Suspect]
     Route: 048
  2. GENERIC LIPITOR [Concomitant]
  3. DILTIAZEM [Concomitant]
  4. METFORMIN [Concomitant]
  5. VITAMIN B COMPLEX [Concomitant]
  6. VITAMIN D [Concomitant]

REACTIONS (6)
  - Pruritus generalised [Not Recovered/Not Resolved]
  - Weight decreased [Unknown]
  - Eye haemorrhage [Not Recovered/Not Resolved]
  - Headache [Not Recovered/Not Resolved]
  - Drug effect incomplete [Unknown]
  - Off label use [Unknown]
